FAERS Safety Report 6179429-X (Version None)
Quarter: 2009Q2

REPORT INFORMATION
  Report Type: 
  Country: None (occurrence: None)
  Receive Date: 20090505
  Receipt Date: 20090427
  Transmission Date: 20091009
  Serious: Yes (Other)
  Sender: FDA-Public Use
  Company Number: B0563244A

PATIENT
  Sex: Female
  Weight: 58 kg

DRUGS (4)
  1. SERETIDE [Suspect]
     Indication: ASTHMA
     Route: 055
     Dates: start: 20051101
  2. VENTOLIN [Suspect]
     Indication: ASTHMA
     Route: 055
  3. SYMBICORT [Suspect]
     Indication: ASTHMA
     Route: 065
  4. BECOTIDE [Concomitant]
     Indication: ASTHMA
     Route: 055

REACTIONS (7)
  - ASTHMA [None]
  - DRUG INEFFECTIVE [None]
  - PRURITUS [None]
  - PRURITUS GENERALISED [None]
  - PSORIASIS [None]
  - RASH [None]
  - RASH MACULAR [None]
